FAERS Safety Report 24857209 (Version 1)
Quarter: 2025Q1

REPORT INFORMATION
  Report Type: Spontaneous
  Country: US (occurrence: US)
  Receive Date: 20250117
  Receipt Date: 20250117
  Transmission Date: 20250409
  Serious: Yes (Death, Hospitalization)
  Sender: THERATECHNOLOGIES
  Company Number: US-THERATECHNOLOGIES INC.-2025-THE-IBA-000015

PATIENT

DRUGS (2)
  1. TROGARZO [Suspect]
     Active Substance: IBALIZUMAB-UIYK
     Indication: HIV infection
     Route: 042
     Dates: start: 202103
  2. LENACAPAVIR [Concomitant]
     Active Substance: LENACAPAVIR
     Indication: Product used for unknown indication
     Route: 065

REACTIONS (3)
  - Death [Fatal]
  - Fall [Unknown]
  - Transient ischaemic attack [Unknown]

NARRATIVE: CASE EVENT DATE: 20250110
